FAERS Safety Report 14403786 (Version 3)
Quarter: 2019Q1

REPORT INFORMATION
  Report Type: Report from Study
  Country: CA (occurrence: CA)
  Receive Date: 20180117
  Receipt Date: 20190226
  Transmission Date: 20190417
  Serious: Yes (Hospitalization, Other)
  Sender: FDA-Public Use
  Company Number: PHHY2018CA003944

PATIENT
  Age: 54 Year
  Sex: Female

DRUGS (1)
  1. GILENYA [Suspect]
     Active Substance: FINGOLIMOD HYDROCHLORIDE
     Indication: PRODUCT USED FOR UNKNOWN INDICATION
     Dosage: UNK
     Route: 048
     Dates: start: 20170918

REACTIONS (4)
  - Hypoaesthesia [Recovered/Resolved]
  - Expanded disability status scale score increased [Unknown]
  - Cystitis [Unknown]
  - Influenza [Unknown]

NARRATIVE: CASE EVENT DATE: 20180313
